FAERS Safety Report 7789767-2 (Version None)
Quarter: 2011Q3

REPORT INFORMATION
  Report Type: 
  Country: None (occurrence: None)
  Receive Date: 20110930
  Receipt Date: 20100817
  Transmission Date: 20111222
  Serious: No
  Sender: FDA-Public Use
  Company Number: US-ASTRAZENECA-2010SE27690

PATIENT
  Sex: Female

DRUGS (1)
  1. ARIMIDEX [Suspect]
     Route: 048
     Dates: start: 20070101

REACTIONS (7)
  - BLOOD PRESSURE INCREASED [None]
  - GENITAL DISORDER FEMALE [None]
  - SKIN WRINKLING [None]
  - DRY SKIN [None]
  - ALOPECIA [None]
  - CATARACT [None]
  - FUNGAL INFECTION [None]
